FAERS Safety Report 7080171-1 (Version None)
Quarter: 2010Q4

REPORT INFORMATION
  Report Type: 
  Country: None (occurrence: None)
  Receive Date: 20101103
  Receipt Date: 20101025
  Transmission Date: 20110411
  Serious: Yes (Hospitalization)
  Sender: FDA-Public Use
  Company Number: AR-BIOGENIDEC-2010BI033833

PATIENT
  Age: 66 Year
  Sex: Female

DRUGS (4)
  1. TYSABRI [Suspect]
     Indication: MULTIPLE SCLEROSIS
     Route: 042
     Dates: start: 20091201, end: 20100101
  2. TYSABRI [Suspect]
     Route: 042
     Dates: start: 20100701, end: 20100801
  3. PAROXETINA [Concomitant]
     Indication: DEPRESSION
     Route: 048
  4. LEVOTHYROXINE SODIUM [Concomitant]
     Indication: HYPOTHYROIDISM
     Route: 048

REACTIONS (7)
  - ANTI-THYROID ANTIBODY POSITIVE [None]
  - BLOOD THYROID STIMULATING HORMONE INCREASED [None]
  - CONFUSIONAL STATE [None]
  - INFECTION [None]
  - MULTIPLE SCLEROSIS [None]
  - NUCLEAR MAGNETIC RESONANCE IMAGING ABNORMAL [None]
  - VASCULITIS [None]
